FAERS Safety Report 9030616 (Version 2)
Quarter: 2013Q1

REPORT INFORMATION
  Report Type: Spontaneous
  Country: US (occurrence: US)
  Receive Date: 20130123
  Receipt Date: 20130204
  Transmission Date: 20140127
  Serious: No
  Sender: FDA-Public Use
  Company Number: US-VERTEX PHARMACEUTICALS INC.-2013-000966

PATIENT
  Sex: Female
  Weight: 104 kg

DRUGS (19)
  1. INCIVEK [Suspect]
     Indication: HEPATITIS C
     Dosage: 750 MG, TID
     Route: 048
     Dates: start: 20121118
  2. RIBAVIRIN [Suspect]
     Indication: HEPATITIS C
     Dosage: 200MG AM 400MG PM
     Dates: start: 20121111
  3. PEGASYS [Suspect]
     Indication: HEPATITIS C
     Dosage: 180 ?G, QW
     Route: 058
     Dates: start: 20121111
  4. XIFAXAN [Concomitant]
     Dosage: 550 MG, BID
     Route: 048
  5. NADOLOL [Concomitant]
     Dosage: 20 MG, QD
  6. HYDROCHLOROTHIAZIDE [Concomitant]
     Dosage: 25 MG, QD
  7. HERBALIFE SLEEP NOW [Concomitant]
  8. ALPRAZOLAM [Concomitant]
     Dosage: 0.5 MG, UNK
  9. SERTRALINE HYDROCHLORIDE [Concomitant]
     Dosage: 50 MG, QD
  10. OMEPRAZOLE [Concomitant]
     Dosage: 20 MG, QD
  11. OXYCODONE HYDROCHLORIDE [Concomitant]
     Dosage: 0.5 MG, UNK
  12. VENTOLIN HFA [Concomitant]
     Dosage: (90 BASE)MCG/AC AS NEEDED
  13. FISH OIL [Concomitant]
  14. GLIPIZIDE [Concomitant]
     Dosage: 2.5 MG, UNK
  15. MTV [Concomitant]
  16. MILK THISTLE EXTRACT [Concomitant]
  17. AMLODIPINE BESYLATE [Concomitant]
     Dosage: 10 MG, UNK
  18. GARLIC [Concomitant]
  19. CALCIUM [Concomitant]

REACTIONS (3)
  - Herpes zoster [Not Recovered/Not Resolved]
  - Weight increased [Recovered/Resolved]
  - Aphthous stomatitis [Recovered/Resolved]
